FAERS Safety Report 18419519 (Version 4)
Quarter: 2020Q4

REPORT INFORMATION
  Report Type: Spontaneous
  Country: PT (occurrence: PT)
  Receive Date: 20201023
  Receipt Date: 20201210
  Transmission Date: 20210114
  Serious: Yes (Life-Threatening, Other)
  Sender: FDA-Public Use
  Company Number: PT-SYNTHON BV-NL01PV13.31952

PATIENT
  Age: 6 Year
  Sex: Male

DRUGS (8)
  1. MONTELUKAST [Suspect]
     Active Substance: MONTELUKAST SODIUM
     Indication: ASTHMA
  2. BENURON [Suspect]
     Active Substance: ACETAMINOPHEN
     Indication: HEADACHE
     Dosage: UNK
     Route: 048
  3. PARACETAMOL [Suspect]
     Active Substance: ACETAMINOPHEN
     Indication: DRUG PROVOCATION TEST
     Dosage: 290 MILLIGRAM
     Route: 048
  4. LEVOCETIRIZINE DIHYDROCHLORIDE. [Suspect]
     Active Substance: LEVOCETIRIZINE DIHYDROCHLORIDE
     Indication: PRODUCT USED FOR UNKNOWN INDICATION
     Dosage: DAILY
  5. XYZAL [Suspect]
     Active Substance: LEVOCETIRIZINE DIHYDROCHLORIDE
     Indication: RHINITIS
     Dosage: ONCE A DAY
  6. MONTELUKAST [Suspect]
     Active Substance: MONTELUKAST SODIUM
     Indication: RHINITIS
     Dosage: DAILY (ONCE A DAY)
  7. BUDESONIDE. [Suspect]
     Active Substance: BUDESONIDE
     Indication: PRODUCT USED FOR UNKNOWN INDICATION
     Dosage: DAILY
     Route: 045
  8. IBUPROFEN. [Concomitant]
     Active Substance: IBUPROFEN
     Dosage: UNK

REACTIONS (14)
  - Anaphylactic reaction [Unknown]
  - Dyspnoea [Unknown]
  - Cough [Recovered/Resolved]
  - Headache [Unknown]
  - Wheezing [Unknown]
  - Urticaria [Recovered/Resolved]
  - Drug interaction [Recovered/Resolved]
  - Eosinophilia [Recovered/Resolved]
  - Angioedema [Recovered/Resolved]
  - Vomiting [Unknown]
  - Condition aggravated [Recovered/Resolved]
  - Bronchospasm [Recovered/Resolved]
  - Respiratory distress [Unknown]
  - Loss of consciousness [Unknown]
